FAERS Safety Report 14015830 (Version 1)
Quarter: 2017Q3

REPORT INFORMATION
  Report Type: Spontaneous
  Country: US (occurrence: None)
  Receive Date: 20170927
  Receipt Date: 20170927
  Transmission Date: 20171128
  Serious: Yes (Other)
  Sender: FDA-Public Use
  Company Number: None

PATIENT
  Age: 58 Year
  Sex: Female
  Weight: 58.97 kg

DRUGS (12)
  1. CALCIUM [Concomitant]
     Active Substance: CALCIUM
  2. PROLIA [Suspect]
     Active Substance: DENOSUMAB
     Indication: OSTEOPOROSIS
     Dosage: 1 INJECTION EVERY 6 MONTHS
     Dates: start: 20170607, end: 20170607
  3. IMITREX [Concomitant]
     Active Substance: SUMATRIPTAN SUCCINATE
  4. PROBIOTIC [Concomitant]
     Active Substance: PROBIOTICS NOS
  5. VITAMIN C [Concomitant]
     Active Substance: ASCORBIC ACID
  6. PROLIA [Suspect]
     Active Substance: DENOSUMAB
     Indication: OSTEOPENIA
     Dosage: 1 INJECTION EVERY 6 MONTHS
     Dates: start: 20170607, end: 20170607
  7. GABAPENTIN. [Concomitant]
     Active Substance: GABAPENTIN
  8. RESTASIS [Concomitant]
     Active Substance: CYCLOSPORINE
  9. MULTI VITAMIN [Concomitant]
     Active Substance: VITAMINS
  10. TEMAZEPAM. [Concomitant]
     Active Substance: TEMAZEPAM
  11. ZIOPTAN [Concomitant]
     Active Substance: TAFLUPROST
  12. GLUCOSAMINE/MSM [Concomitant]

REACTIONS (27)
  - Anal pruritus [None]
  - Dry skin [None]
  - Burning sensation [None]
  - Pruritus [None]
  - Nasal mucosal ulcer [None]
  - Feeling hot [None]
  - Rash macular [None]
  - Insomnia [None]
  - Malaise [None]
  - Genital erythema [None]
  - Ear disorder [None]
  - Myalgia [None]
  - Pathological fracture [None]
  - Foot fracture [None]
  - Eyelid disorder [None]
  - Rhinalgia [None]
  - Genital pain [None]
  - Fatigue [None]
  - Skin discolouration [None]
  - Skin texture abnormal [None]
  - Skin disorder [None]
  - Erythema [None]
  - Skin exfoliation [None]
  - Lip erythema [None]
  - Musculoskeletal disorder [None]
  - Back pain [None]
  - Rash [None]

NARRATIVE: CASE EVENT DATE: 20170607
